FAERS Safety Report 6278656-0 (Version None)
Quarter: 2009Q3

REPORT INFORMATION
  Report Type: 
  Country: None (occurrence: None)
  Receive Date: 20090722
  Receipt Date: 20090605
  Transmission Date: 20100115
  Serious: No
  Sender: FDA-Public Use
  Company Number: US-BAUSCH-2009BL002908

PATIENT
  Age: 66 Year
  Sex: Male

DRUGS (5)
  1. OPCON-A [Suspect]
     Indication: OCULAR HYPERAEMIA
     Route: 047
     Dates: start: 20090101, end: 20090523
  2. CALCIUM MAGNESIUM ZINC [Concomitant]
  3. LISINOPRIL [Concomitant]
  4. DIAZIDE [Concomitant]
  5. SIMVASTATIN [Concomitant]

REACTIONS (2)
  - EYE IRRITATION [None]
  - OCULAR HYPERAEMIA [None]
